FAERS Safety Report 7214796-7 (Version None)
Quarter: 2011Q1

REPORT INFORMATION
  Report Type: 
  Country: None (occurrence: None)
  Receive Date: 20110107
  Receipt Date: 20100226
  Transmission Date: 20110831
  Serious: No
  Sender: FDA-Public Use
  Company Number: A0847057A

PATIENT
  Age: 80 Year
  Sex: Female

DRUGS (10)
  1. ATENOLOL [Concomitant]
  2. CALCIUM + D [Concomitant]
  3. RANITIDINE [Concomitant]
  4. LEVOXYL [Concomitant]
  5. VITAMIN B-12 [Concomitant]
     Route: 048
  6. CENTRUM [Concomitant]
  7. LOVAZA [Suspect]
     Dosage: 2CAP TWICE PER DAY
     Route: 048
     Dates: start: 20100224
  8. VALIUM [Concomitant]
  9. ZOLOFT [Concomitant]
  10. SPIRONOLACTONE [Concomitant]

REACTIONS (1)
  - DRUG ADMINISTRATION ERROR [None]
